FAERS Safety Report 4682124-7 (Version None)
Quarter: 2005Q2

REPORT INFORMATION
  Report Type: 
  Country: None (occurrence: None)
  Receive Date: 20050602
  Receipt Date: 20050523
  Transmission Date: 20051028
  Serious: Yes (Hospitalization, Other)
  Sender: FDA-Public Use
  Company Number: CH-2005-005429

PATIENT
  Age: 70 Year
  Sex: Male

DRUGS (16)
  1. ULTRAVIST 300 [Suspect]
     Indication: ARTERIOGRAM CORONARY
     Dosage: SEE IMAGE
     Route: 042
     Dates: start: 20041222, end: 20041222
  2. ULTRAVIST 300 [Suspect]
     Indication: CORONARY ARTERIAL STENT INSERTION
     Dosage: SEE IMAGE
     Route: 042
     Dates: start: 20041222, end: 20041222
  3. ULTRAVIST 300 [Suspect]
     Indication: ARTERIOGRAM CORONARY
     Dosage: SEE IMAGE
     Route: 042
     Dates: start: 20041224, end: 20041224
  4. ULTRAVIST 300 [Suspect]
     Indication: CORONARY ARTERIAL STENT INSERTION
     Dosage: SEE IMAGE
     Route: 042
     Dates: start: 20041224, end: 20041224
  5. N-ACETYLCYSTIENE [Concomitant]
  6. LIQUAEMIN INJ [Concomitant]
  7. HEPARIN [Concomitant]
  8. ASPIRIN [Concomitant]
  9. PLAVIX [Concomitant]
  10. ZESTRIL [Concomitant]
  11. AUGMENTIN '125' [Concomitant]
  12. SELIPRAN (PRAVASTATIN SODIUM) [Concomitant]
  13. MADOPAR (BENSERAZIDE HYDROCHLORIDE, LEVODOPA) [Concomitant]
  14. NEXIUM [Concomitant]
  15. NEPRO (FATS NOS, CARBOHYDRATES NOS, VITAMINS NOS, PROTEIN, MINERAL SNO [Concomitant]
  16. GLUCOSE [Concomitant]

REACTIONS (23)
  - ACUTE RESPIRATORY DISTRESS SYNDROME [None]
  - ANAL CANDIDIASIS [None]
  - ATRIAL FLUTTER [None]
  - CANDIDIASIS [None]
  - CONTRAST MEDIA REACTION [None]
  - DELIRIUM [None]
  - DILATATION ATRIAL [None]
  - DRUG INTOLERANCE [None]
  - HAEMOGLOBIN DECREASED [None]
  - HYPERTENSIVE CRISIS [None]
  - INFLAMMATION [None]
  - LUNG INFECTION [None]
  - NEPHROGENIC ANAEMIA [None]
  - NORMOCHROMIC NORMOCYTIC ANAEMIA [None]
  - OXYGEN SATURATION DECREASED [None]
  - PLATELET COUNT DECREASED [None]
  - PULMONARY ALVEOLAR HAEMORRHAGE [None]
  - PULMONARY CONGESTION [None]
  - PULMONARY OEDEMA [None]
  - RENAL FAILURE [None]
  - STAPHYLOCOCCAL INFECTION [None]
  - TRICUSPID VALVE INCOMPETENCE [None]
  - VENTRICULAR DYSFUNCTION [None]
